FAERS Safety Report 10256534 (Version 1)
Quarter: 2014Q2

REPORT INFORMATION
  Report Type: Report from Study
  Country: DE (occurrence: DE)
  Receive Date: 20140624
  Receipt Date: 20140624
  Transmission Date: 20141212
  Serious: Yes (Hospitalization, Other)
  Sender: FDA-Public Use
  Company Number: DE-JNJFOC-20130604951

PATIENT
  Age: 63 Year
  Sex: Female
  Weight: 75 kg

DRUGS (4)
  1. RIVAROXABAN [Suspect]
     Indication: THROMBOSIS PROPHYLAXIS
     Route: 048
     Dates: start: 20121228, end: 20121231
  2. RIVAROXABAN [Suspect]
     Indication: DEEP VEIN THROMBOSIS
     Route: 048
     Dates: start: 20121228, end: 20121231
  3. ASS [Concomitant]
     Indication: PROPHYLAXIS
     Route: 065
     Dates: start: 20121116
  4. L-THYROX [Concomitant]
     Indication: THYROID DISORDER
     Route: 065
     Dates: start: 200704

REACTIONS (1)
  - Pulmonary embolism [Recovered/Resolved]
